FAERS Safety Report 22374176 (Version 1)
Quarter: 2023Q2

REPORT INFORMATION
  Report Type: Spontaneous
  Country: US (occurrence: None)
  Receive Date: 20230526
  Receipt Date: 20230526
  Transmission Date: 20230722
  Serious: No
  Sender: FDA-Public Use
  Company Number: None

PATIENT

DRUGS (3)
  1. ABILIFY MAINTENA [Suspect]
     Active Substance: ARIPIPRAZOLE
  2. ARIPIPRAZOLE [Suspect]
     Active Substance: ARIPIPRAZOLE
  3. ARISTADA [Suspect]
     Active Substance: ARIPIPRAZOLE LAUROXIL

REACTIONS (5)
  - Wrong product administered [None]
  - Incorrect dose administered [None]
  - Product dose omission issue [None]
  - Transcription medication error [None]
  - Product communication issue [None]
